FAERS Safety Report 7988107-3 (Version None)
Quarter: 2011Q4

REPORT INFORMATION
  Report Type: 
  Country: None (occurrence: None)
  Receive Date: 20111216
  Receipt Date: 20110614
  Transmission Date: 20120403
  Serious: Yes (Other)
  Sender: FDA-Public Use
  Company Number: US-BRISTOL-MYERS SQUIBB COMPANY-15806383

PATIENT
  Age: 22 Year
  Sex: Female
  Weight: 150 kg

DRUGS (12)
  1. GLIPIZIDE [Suspect]
  2. METFORMIN HCL [Suspect]
  3. LANTUS [Concomitant]
  4. BUSPIRONE HCL [Concomitant]
  5. ABILIFY [Suspect]
     Indication: BIPOLAR DISORDER
     Dosage: DURATION: 2 1/2YEARS
     Route: 048
     Dates: start: 20090130
  6. ACTOS [Suspect]
  7. LITHIUM CARBONATE [Concomitant]
  8. ABILIFY [Suspect]
     Indication: DEPRESSION
     Dosage: DURATION: 2 1/2YEARS
     Route: 048
     Dates: start: 20090130
  9. ABILIFY [Suspect]
     Indication: PANIC DISORDER
     Dosage: DURATION: 2 1/2YEARS
     Route: 048
     Dates: start: 20090130
  10. LISINOPRIL [Concomitant]
  11. BENZTROPINE MESYLATE [Concomitant]
  12. LAMICTAL [Concomitant]

REACTIONS (3)
  - HYPERGLYCAEMIA [None]
  - FUNGAL INFECTION [None]
  - URINE OUTPUT INCREASED [None]
